FAERS Safety Report 9109030 (Version 2)
Quarter: 2013Q1

REPORT INFORMATION
  Report Type: Spontaneous
  Country: US (occurrence: US)
  Receive Date: 20130222
  Receipt Date: 20130325
  Transmission Date: 20140127
  Serious: Yes (Hospitalization, Disabling)
  Sender: FDA-Public Use
  Company Number: US-SANOFI-AVENTIS-2013SA015798

PATIENT
  Age: 57 Year
  Sex: Female
  Weight: 50 kg

DRUGS (9)
  1. LANTUS SOLOSTAR [Suspect]
     Indication: TYPE 1 DIABETES MELLITUS
     Dosage: DOSE:17 UNIT(S)
     Route: 051
     Dates: start: 2011
  2. SOLOSTAR [Suspect]
     Indication: TYPE 1 DIABETES MELLITUS
     Dates: start: 2011
  3. HUMALOG [Concomitant]
     Dosage: SLIDING SCALE
  4. ZOLOFT [Concomitant]
     Indication: DEPRESSION
     Dates: start: 2012
  5. ATIVAN [Concomitant]
     Indication: ANXIETY
  6. LISINOPRIL [Concomitant]
  7. DICLOFENAC [Concomitant]
  8. AZITHROMYCIN [Concomitant]
  9. QUETIAPINE FUMARATE [Concomitant]

REACTIONS (6)
  - Respiratory tract infection [Unknown]
  - Disability [Unknown]
  - Detoxification [Recovering/Resolving]
  - Hyperglycaemia [Unknown]
  - Blood glucose increased [Recovered/Resolved]
  - Blood glucose increased [Unknown]
